FAERS Safety Report 5161138-7 (Version None)
Quarter: 2006Q4

REPORT INFORMATION
  Report Type: 
  Country: None (occurrence: None)
  Receive Date: 20061121
  Receipt Date: 20061110
  Transmission Date: 20070319
  Serious: Yes (Hospitalization)
  Sender: FDA-Public Use
  Company Number: MEDI-0004708

PATIENT
  Age: 4 Month

DRUGS (5)
  1. SYNAGIS [Suspect]
     Indication: ANTIVIRAL PROPHYLAXIS
     Dosage: 73 MG, INTRAMUSCULAR; 120 MG, INTRAMUSCULAR
     Route: 030
     Dates: start: 20051025, end: 20051025
  2. SYNAGIS [Suspect]
     Indication: ANTIVIRAL PROPHYLAXIS
     Dosage: 73 MG, INTRAMUSCULAR; 120 MG, INTRAMUSCULAR
     Route: 030
     Dates: start: 20051122
  3. SYNAGIS [Suspect]
     Indication: ANTIVIRAL PROPHYLAXIS
     Dosage: 73 MG, INTRAMUSCULAR; 120 MG, INTRAMUSCULAR
     Route: 030
     Dates: start: 20060103
  4. SYNAGIS [Suspect]
     Indication: ANTIVIRAL PROPHYLAXIS
     Dosage: 73 MG, INTRAMUSCULAR; 120 MG, INTRAMUSCULAR
     Route: 030
     Dates: start: 20060131
  5. SYNAGIS [Suspect]
     Indication: ANTIVIRAL PROPHYLAXIS
     Dosage: 73 MG, INTRAMUSCULAR; 120 MG, INTRAMUSCULAR
     Route: 030
     Dates: start: 20060228

REACTIONS (4)
  - ASTHMA [None]
  - INFECTION [None]
  - LUNG DISORDER [None]
  - NASOPHARYNGITIS [None]
